FAERS Safety Report 20963754 (Version 1)
Quarter: 2022Q2

REPORT INFORMATION
  Report Type: Spontaneous
  Country: FR (occurrence: FR)
  Receive Date: 20220615
  Receipt Date: 20220615
  Transmission Date: 20220721
  Serious: Yes (Hospitalization)
  Sender: FDA-Public Use
  Company Number: FR-LUNDBECK-DKLU3048814

PATIENT
  Sex: Male

DRUGS (1)
  1. ESCITALOPRAM OXALATE [Suspect]
     Active Substance: ESCITALOPRAM OXALATE
     Indication: Product used for unknown indication
     Dosage: 60 MG
     Route: 048
     Dates: start: 20220317, end: 20220317

REACTIONS (7)
  - Post-traumatic stress disorder [Recovering/Resolving]
  - Victim of crime [Recovered/Resolved with Sequelae]
  - Chemical submission [Recovered/Resolved with Sequelae]
  - Vomiting [Recovered/Resolved]
  - Nausea [Recovered/Resolved]
  - Product administered to patient of inappropriate age [Unknown]
  - Overdose [Unknown]

NARRATIVE: CASE EVENT DATE: 20220317
